FAERS Safety Report 18068815 (Version 1)
Quarter: 2020Q3

REPORT INFORMATION
  Report Type: Report from Study
  Country: CA (occurrence: CA)
  Receive Date: 20200725
  Receipt Date: 20200725
  Transmission Date: 20201103
  Serious: Yes (Hospitalization)
  Sender: FDA-Public Use
  Company Number: CA-ACCORD-192013

PATIENT
  Age: 89 Year
  Sex: Male

DRUGS (12)
  1. INFLIXIMAB [Concomitant]
     Active Substance: INFLIXIMAB
     Route: 065
  2. SIMPONI [Concomitant]
     Active Substance: GOLIMUMAB
     Route: 058
  3. METHOTREXATE. [Suspect]
     Active Substance: METHOTREXATE
     Indication: PRODUCT USED FOR UNKNOWN INDICATION
     Route: 065
  4. SACUBITRIL/VALSARTAN [Suspect]
     Active Substance: SACUBITRIL\VALSARTAN
     Indication: PRODUCT USED FOR UNKNOWN INDICATION
     Route: 065
  5. FOLIC ACID. [Suspect]
     Active Substance: FOLIC ACID
     Indication: PRODUCT USED FOR UNKNOWN INDICATION
     Route: 065
  6. CARVEDILOL/CARVEDILOL HYDROCHLODRIDE [Concomitant]
     Active Substance: CARVEDILOL HYDROCHLORIDE
     Route: 065
  7. GALANTAMINE/GALANTAMINE HYDROBROMIDE [Concomitant]
     Active Substance: GALANTAMINE\GALANTAMINE HYDROBROMIDE
     Indication: MEMORY IMPAIRMENT
     Route: 065
  8. PREDNISONE. [Concomitant]
     Active Substance: PREDNISONE
     Dosage: 2 EVERY 1 DAYS
     Route: 065
  9. COSENTYX [Suspect]
     Active Substance: SECUKINUMAB
     Indication: PSORIATIC ARTHROPATHY
     Dosage: 1 EVERY 1 WEEKS
     Route: 058
  10. GABAPENTIN. [Concomitant]
     Active Substance: GABAPENTIN
     Dosage: 3 EVERY 1 DAYS
     Route: 065
  11. COSENTYX [Suspect]
     Active Substance: SECUKINUMAB
     Indication: PSORIATIC ARTHROPATHY
     Dosage: 1 EVERY 1 MONTHS
     Route: 058
  12. ROSUVASTATIN. [Suspect]
     Active Substance: ROSUVASTATIN
     Indication: PRODUCT USED FOR UNKNOWN INDICATION
     Route: 065

REACTIONS (6)
  - Gait inability [Not Recovered/Not Resolved]
  - Pain in extremity [Not Recovered/Not Resolved]
  - Therapeutic response shortened [Unknown]
  - Transient ischaemic attack [Not Recovered/Not Resolved]
  - Hemiparesis [Not Recovered/Not Resolved]
  - Peripheral swelling [Not Recovered/Not Resolved]
